FAERS Safety Report 20556124 (Version 1)
Quarter: 2022Q1

REPORT INFORMATION
  Report Type: Other
  Country: US (occurrence: None)
  Receive Date: 20220304
  Receipt Date: 20220304
  Transmission Date: 20220423
  Serious: Yes (Hospitalization, Other)
  Sender: FDA-Public Use
  Company Number: US-ROCHE-2538615

PATIENT
  Sex: Female
  Weight: 102.15 kg

DRUGS (14)
  1. XOLAIR [Suspect]
     Active Substance: OMALIZUMAB
     Indication: Asthma
     Dosage: ONGOING:YES
     Route: 065
  2. ESCITALOPRAM [Concomitant]
     Active Substance: ESCITALOPRAM OXALATE
  3. LAMOTRIGINE [Concomitant]
     Active Substance: LAMOTRIGINE
  4. MONTELUKAST [Concomitant]
     Active Substance: MONTELUKAST SODIUM
  5. NEURONTIN [Concomitant]
     Active Substance: GABAPENTIN
  6. NEXIUM [Concomitant]
     Active Substance: ESOMEPRAZOLE MAGNESIUM
  7. PHENYTOIN [Concomitant]
     Active Substance: PHENYTOIN
  8. PIOGLITAZONE [Concomitant]
     Active Substance: PIOGLITAZONE
  9. SPIRIVA RESPIMAT [Concomitant]
     Active Substance: TIOTROPIUM BROMIDE
  10. TRULICITY [Concomitant]
     Active Substance: DULAGLUTIDE
  11. VIMPAT [Concomitant]
     Active Substance: LACOSAMIDE
  12. ZYRTEC (UNITED STATES) [Concomitant]
  13. METFORMIN [Concomitant]
     Active Substance: METFORMIN HYDROCHLORIDE
  14. SYMBICORT [Concomitant]
     Active Substance: BUDESONIDE\FORMOTEROL FUMARATE DIHYDRATE

REACTIONS (22)
  - Diabetes mellitus [Not Recovered/Not Resolved]
  - Off label use [Unknown]
  - Vocal cord disorder [Unknown]
  - Abnormal loss of weight [Unknown]
  - Unevaluable event [Unknown]
  - Dysphonia [Unknown]
  - Rhinorrhoea [Unknown]
  - Cough [Unknown]
  - Decreased appetite [Unknown]
  - Headache [Unknown]
  - Dyspnoea [Unknown]
  - Choking [Unknown]
  - Snoring [Unknown]
  - Obesity [Unknown]
  - Dysarthria [Recovered/Resolved]
  - Seizure [Recovered/Resolved]
  - Wheezing [Recovered/Resolved]
  - Dyspnoea [Recovered/Resolved]
  - Dysphagia [Recovered/Resolved]
  - Tremor [Not Recovered/Not Resolved]
  - Nausea [Recovered/Resolved]
  - Asthma [Unknown]
